FAERS Safety Report 17896104 (Version 1)
Quarter: 2020Q2

REPORT INFORMATION
  Report Type: Spontaneous
  Country: US (occurrence: US)
  Receive Date: 20200615
  Receipt Date: 20200615
  Transmission Date: 20200714
  Serious: No
  Sender: FDA-Public Use
  Company Number: None

PATIENT
  Sex: Male

DRUGS (2)
  1. AMBRISENTAN [Suspect]
     Active Substance: AMBRISENTAN
     Dates: end: 20200608
  2. LETAIRIS [Suspect]
     Active Substance: AMBRISENTAN

REACTIONS (2)
  - Drug ineffective [None]
  - Dyspnoea [None]
